FAERS Safety Report 6284263-6 (Version None)
Quarter: 2009Q3

REPORT INFORMATION
  Report Type: 
  Country: None (occurrence: None)
  Receive Date: 20090722
  Receipt Date: 20090706
  Transmission Date: 20100115
  Serious: Yes (Other)
  Sender: FDA-Public Use
  Company Number: DSA_34019_2009

PATIENT
  Age: 48 Year
  Sex: Male

DRUGS (4)
  1. DILTIAZEM HCL [Suspect]
     Indication: HYPERTENSION
     Dosage: (120 MG QD)
  2. DOMPERIDONE [Concomitant]
  3. ALPRAZOLAM [Concomitant]
  4. FAMOTIDINE [Concomitant]

REACTIONS (2)
  - ACUTE GENERALISED EXANTHEMATOUS PUSTULOSIS [None]
  - LIVER FUNCTION TEST ABNORMAL [None]
